FAERS Safety Report 9808522 (Version 2)
Quarter: 2014Q1

REPORT INFORMATION
  Report Type: Spontaneous
  Country: DE (occurrence: DE)
  Receive Date: 20140110
  Receipt Date: 20140224
  Transmission Date: 20141002
  Serious: Yes (Disabling, Other)
  Sender: FDA-Public Use
  Company Number: DE-TEVA-454294GER

PATIENT
  Age: 66 Year
  Sex: Female

DRUGS (3)
  1. MINOCYCLIN [Suspect]
     Indication: BORRELIA INFECTION
     Dosage: 200 MILLIGRAM DAILY;
     Route: 048
     Dates: start: 20090831, end: 20091002
  2. LAFAMME 2/2 MG [Concomitant]
     Dosage: 1 DOSAGE FORMS DAILY; 1 DOSAGE FORM = 2 MG DIENOGEST AND 2 MG ESTRADIOL VALERATE
     Route: 048
  3. BISOPROLOL [Concomitant]
     Route: 048

REACTIONS (12)
  - Abnormal sensation in eye [Not Recovered/Not Resolved]
  - Arthralgia [Recovered/Resolved]
  - Back pain [Recovered/Resolved]
  - Dizziness [Recovered/Resolved]
  - Fatigue [Not Recovered/Not Resolved]
  - Glossodynia [Recovered/Resolved with Sequelae]
  - Headache [Recovering/Resolving]
  - Hyperhidrosis [Recovered/Resolved]
  - Neck pain [Recovered/Resolved]
  - Visual acuity reduced [Recovered/Resolved]
  - Headache [Not Recovered/Not Resolved]
  - Presyncope [Unknown]
